FAERS Safety Report 17287172 (Version 3)
Quarter: 2020Q1

REPORT INFORMATION
  Report Type: Report from Study
  Country: None (occurrence: CA)
  Receive Date: 20200120
  Receipt Date: 20200306
  Transmission Date: 20200409
  Serious: Yes (Hospitalization)
  Sender: FDA-Public Use
  Company Number: CA-ABBVIE-20K-028-3237868-00

PATIENT
  Age: 75 Year
  Sex: Male

DRUGS (1)
  1. DUODOPA [Suspect]
     Active Substance: CARBIDOPA\LEVODOPA
     Indication: PARKINSON^S DISEASE
     Route: 050
     Dates: start: 20181211

REACTIONS (4)
  - Urinary tract infection [Recovered/Resolved]
  - Confusional state [Unknown]
  - Delirium [Unknown]
  - Hallucination [Unknown]

NARRATIVE: CASE EVENT DATE: 20200111
